FAERS Safety Report 19804057 (Version 10)
Quarter: 2022Q1

REPORT INFORMATION
  Report Type: Report from Study
  Country: BR (occurrence: BR)
  Receive Date: 20210908
  Receipt Date: 20220330
  Transmission Date: 20220423
  Serious: Yes (Other)
  Sender: FDA-Public Use
  Company Number: BR-NOVARTISPH-NVSC2021BR162734

PATIENT
  Sex: Female

DRUGS (11)
  1. KISQALI [Suspect]
     Active Substance: RIBOCICLIB
     Indication: Breast cancer female
     Dosage: UNK (21 DAY CYCLE WITH 7 DAY PAUSE) 3 TABLETS
     Route: 065
     Dates: start: 20210629, end: 20210719
  2. KISQALI [Suspect]
     Active Substance: RIBOCICLIB
     Dosage: UNK (3 TABETS, 21 DAY CYCLE WITH 7 DAY PAUSE)
     Route: 065
     Dates: start: 20210629
  3. KISQALI [Suspect]
     Active Substance: RIBOCICLIB
     Dosage: 600 MG
     Route: 065
     Dates: start: 20210629
  4. KISQALI [Suspect]
     Active Substance: RIBOCICLIB
     Dosage: 600 MG
     Route: 065
     Dates: start: 20210629
  5. ZOMETA [Suspect]
     Active Substance: ZOLEDRONIC ACID
     Indication: Bone disorder
     Dosage: UNK
     Route: 065
     Dates: start: 20210827
  6. ZOMETA [Suspect]
     Active Substance: ZOLEDRONIC ACID
     Dosage: UNK
     Route: 065
     Dates: start: 202108
  7. ZOMETA [Suspect]
     Active Substance: ZOLEDRONIC ACID
     Dosage: UNK
     Route: 065
  8. FASLODEX [Concomitant]
     Active Substance: FULVESTRANT
     Indication: Product used for unknown indication
     Dosage: 2 DF (EVERY 15 DAYS)
     Route: 065
     Dates: start: 20210702
  9. ZOLADEX [Concomitant]
     Active Substance: GOSERELIN ACETATE
     Indication: Menopause
     Dosage: UNK (EVERY 28 DAYS)
     Route: 065
  10. ZOLADEX [Concomitant]
     Active Substance: GOSERELIN ACETATE
     Indication: Hormone therapy
  11. OSCAL D [Concomitant]
     Active Substance: CALCIUM CARBONATE\CHOLECALCIFEROL
     Indication: Bone loss
     Dosage: UNK
     Route: 065

REACTIONS (42)
  - Immunodeficiency [Not Recovered/Not Resolved]
  - Neutrophil count decreased [Unknown]
  - Metastases to lymph nodes [Not Recovered/Not Resolved]
  - Metastases to bone [Not Recovered/Not Resolved]
  - Metastases to liver [Not Recovered/Not Resolved]
  - White blood cell count decreased [Recovered/Resolved]
  - Neutrophil count decreased [Recovered/Resolved]
  - Paraesthesia [Unknown]
  - Tumour marker abnormal [Unknown]
  - Abdominal discomfort [Unknown]
  - Abdominal pain upper [Unknown]
  - Hypoaesthesia [Unknown]
  - Fatigue [Not Recovered/Not Resolved]
  - Anaemia [Not Recovered/Not Resolved]
  - Weight decreased [Unknown]
  - Decreased appetite [Not Recovered/Not Resolved]
  - Arthralgia [Recovering/Resolving]
  - Carbohydrate antigen 27.29 [Unknown]
  - Anxiety [Unknown]
  - Lymphadenopathy [Unknown]
  - Muscular weakness [Unknown]
  - Hypertension [Unknown]
  - Metabolic disorder [Unknown]
  - Blood calcium increased [Not Recovered/Not Resolved]
  - Pain in extremity [Unknown]
  - Malaise [Unknown]
  - Hypotension [Unknown]
  - Weight increased [Unknown]
  - Breast pain [Recovered/Resolved]
  - Back pain [Recovered/Resolved]
  - Peripheral swelling [Unknown]
  - Paraesthesia [Recovered/Resolved]
  - Onychoclasis [Unknown]
  - Peripheral swelling [Not Recovered/Not Resolved]
  - Phlebitis [Recovering/Resolving]
  - Sensitive skin [Recovering/Resolving]
  - Pain of skin [Recovering/Resolving]
  - Chills [Recovered/Resolved]
  - Pyrexia [Recovered/Resolved]
  - Dyspnoea [Recovered/Resolved]
  - Back pain [Unknown]
  - Somnolence [Unknown]

NARRATIVE: CASE EVENT DATE: 20210101
